FAERS Safety Report 25103675 (Version 1)
Quarter: 2025Q1

REPORT INFORMATION
  Report Type: Spontaneous
  Country: CN (occurrence: CN)
  Receive Date: 20250321
  Receipt Date: 20250321
  Transmission Date: 20250409
  Serious: Yes (Other)
  Sender: CSL BEHRING
  Company Number: CN-BEH-2025199559

PATIENT
  Age: 61 Year
  Sex: Female
  Weight: 52 kg

DRUGS (8)
  1. ALBURX [Suspect]
     Active Substance: ALBUMIN HUMAN
     Indication: Intestinal obstruction
     Dosage: 20 G, QD
     Route: 041
     Dates: start: 20250224, end: 20250227
  2. ALBURX [Suspect]
     Active Substance: ALBUMIN HUMAN
     Indication: Hypoproteinaemia
     Route: 041
     Dates: start: 20250223
  3. ALBURX [Suspect]
     Active Substance: ALBUMIN HUMAN
     Route: 041
     Dates: start: 20250225
  4. ALBURX [Suspect]
     Active Substance: ALBUMIN HUMAN
     Route: 041
     Dates: start: 20250226
  5. ALBURX [Suspect]
     Active Substance: ALBUMIN HUMAN
     Route: 041
     Dates: start: 20250227
  6. ALBURX [Suspect]
     Active Substance: ALBUMIN HUMAN
     Route: 041
     Dates: start: 20250301
  7. ALBURX [Suspect]
     Active Substance: ALBUMIN HUMAN
     Route: 041
     Dates: start: 20250304
  8. ALBURX [Suspect]
     Active Substance: ALBUMIN HUMAN
     Route: 041
     Dates: start: 20250305

REACTIONS (3)
  - Thrombosis [Unknown]
  - Angiopathy [Unknown]
  - Coagulopathy [Recovering/Resolving]

NARRATIVE: CASE EVENT DATE: 20250225
